FAERS Safety Report 9024353 (Version 3)
Quarter: 2013Q1

REPORT INFORMATION
  Report Type: Spontaneous
  Country: US (occurrence: US)
  Receive Date: 20130121
  Receipt Date: 20130204
  Transmission Date: 20140127
  Serious: Yes (Hospitalization)
  Sender: FDA-Public Use
  Company Number: US-BAYER-2013-005685

PATIENT
  Age: 49 Year
  Sex: Female

DRUGS (8)
  1. YAZ [Suspect]
     Dosage: UNK
     Dates: start: 2007
  2. YASMIN [Suspect]
     Dosage: UNK
     Dates: start: 2007
  3. XANAX [Concomitant]
  4. METRONIDAZOLE [Concomitant]
     Dosage: 500 MG, UNK
  5. METRONIDAZOLE [Concomitant]
     Dosage: 0.75% LOTION
  6. ROSAC [Concomitant]
  7. DOXYCYCLINE HYCLATE [Concomitant]
     Dosage: 50 MG, UNK
  8. DESONIDE [Concomitant]
     Dosage: 0.05 %, UNK

REACTIONS (6)
  - Pulmonary embolism [None]
  - Deep vein thrombosis [None]
  - Pain [None]
  - Injury [None]
  - Fear [None]
  - Pain [None]
